FAERS Safety Report 18942690 (Version 2)
Quarter: 2021Q1

REPORT INFORMATION
  Report Type: Spontaneous
  Country: US (occurrence: US)
  Receive Date: 20210225
  Receipt Date: 20210310
  Transmission Date: 20210420
  Serious: Yes (Other)
  Sender: FDA-Public Use
  Company Number: US-LUNDBECK-DKLU3029133

PATIENT
  Age: 59 Year
  Sex: Male

DRUGS (8)
  1. LAMOTRIGINE. [Concomitant]
     Active Substance: LAMOTRIGINE
     Indication: PRODUCT USED FOR UNKNOWN INDICATION
     Route: 065
  2. LORAZEPAM. [Concomitant]
     Active Substance: LORAZEPAM
     Indication: SEIZURE CLUSTER
     Route: 065
  3. ONFI [Suspect]
     Active Substance: CLOBAZAM
     Indication: SEIZURE
     Route: 048
  4. TEGRETOL XR [Concomitant]
     Active Substance: CARBAMAZEPINE
     Indication: PRODUCT USED FOR UNKNOWN INDICATION
     Route: 065
  5. ONFI [Suspect]
     Active Substance: CLOBAZAM
     Route: 065
  6. TEGRETOL XR [Concomitant]
     Active Substance: CARBAMAZEPINE
     Route: 065
     Dates: start: 20200106
  7. TEGRETOL XR [Concomitant]
     Active Substance: CARBAMAZEPINE
     Route: 065
  8. TEGRETOL XR [Concomitant]
     Active Substance: CARBAMAZEPINE
     Route: 065
     Dates: start: 20200106

REACTIONS (6)
  - Fall [Recovered/Resolved]
  - Seizure [Recovered/Resolved]
  - Balance disorder [Recovered/Resolved]
  - Myalgia [Recovered/Resolved]
  - Strabismus [Recovered/Resolved]
  - Gait disturbance [Recovered/Resolved]
